FAERS Safety Report 6751139-7 (Version None)
Quarter: 2010Q2

REPORT INFORMATION
  Report Type: 
  Country: None (occurrence: None)
  Receive Date: 20100602
  Receipt Date: 20100527
  Transmission Date: 20101027
  Serious: Yes (Other)
  Sender: FDA-Public Use
  Company Number: US-JNJFOC-20100510813

PATIENT
  Sex: Female
  Weight: 62.14 kg

DRUGS (5)
  1. FENTANYL CITRATE [Suspect]
     Indication: BACK PAIN
     Dosage: NDC# 0781711255
     Route: 062
  2. NORCO [Concomitant]
     Indication: BREAKTHROUGH PAIN
     Route: 048
  3. SOMA [Concomitant]
     Indication: MYALGIA
     Route: 048
  4. XANAX [Concomitant]
     Indication: STRESS
     Route: 048
  5. NEURONTIN [Concomitant]
     Indication: NEURALGIA
     Route: 048

REACTIONS (4)
  - APPLICATION SITE RASH [None]
  - BACK DISORDER [None]
  - BONE CYST [None]
  - DIZZINESS [None]
